FAERS Safety Report 7278546-0 (Version None)
Quarter: 2011Q1

REPORT INFORMATION
  Report Type: 
  Country: None (occurrence: None)
  Receive Date: 20110207
  Receipt Date: 20110128
  Transmission Date: 20110831
  Serious: Yes (Death, Hospitalization, Other)
  Sender: FDA-Public Use
  Company Number: PHHY2011FR07287

PATIENT
  Age: 40 Year
  Sex: Female

DRUGS (3)
  1. ISONIAZID [Suspect]
     Indication: PULMONARY TUBERCULOSIS
  2. PYRAZINAMIDE [Suspect]
     Indication: PULMONARY TUBERCULOSIS
  3. RIFAMPICIN [Suspect]
     Indication: PULMONARY TUBERCULOSIS

REACTIONS (6)
  - ACUTE RESPIRATORY DISTRESS SYNDROME [None]
  - BLOOD CREATININE INCREASED [None]
  - ACUTE HEPATIC FAILURE [None]
  - SEPTIC SHOCK [None]
  - HEPATIC ENCEPHALOPATHY [None]
  - JAUNDICE [None]
